FAERS Safety Report 15686865 (Version 1)
Quarter: 2018Q4

REPORT INFORMATION
  Report Type: Report from Study
  Country: DE (occurrence: DE)
  Receive Date: 20181204
  Receipt Date: 20181204
  Transmission Date: 20190205
  Serious: Yes (Life-Threatening, Hospitalization, Other)
  Sender: FDA-Public Use
  Company Number: PHHY2018DE174428

PATIENT
  Sex: Male
  Weight: 82 kg

DRUGS (8)
  1. FUROSEMIDE. [Concomitant]
     Active Substance: FUROSEMIDE
     Indication: HEPATIC CIRRHOSIS
     Dosage: 20 MG, UNK
     Route: 048
  2. COSENTYX [Suspect]
     Active Substance: SECUKINUMAB
     Dosage: 300 MG, UNK
     Route: 058
     Dates: start: 20180927, end: 20180927
  3. PANTOPRAZOLE [Concomitant]
     Active Substance: PANTOPRAZOLE
     Indication: GASTRITIS
     Dosage: 20 MG, UNK
     Route: 048
     Dates: start: 20181119
  4. HUMIRA [Concomitant]
     Active Substance: ADALIMUMAB
     Indication: PSORIASIS
     Dosage: 80 MG, UNK
     Route: 058
     Dates: start: 20181025, end: 20181103
  5. SPIRONOLACTONE. [Concomitant]
     Active Substance: SPIRONOLACTONE
     Indication: HEPATIC CIRRHOSIS
     Dosage: 50 MG, UNK
     Route: 048
     Dates: start: 2009
  6. COSENTYX [Suspect]
     Active Substance: SECUKINUMAB
     Indication: PSORIASIS
     Dosage: 300 MG, UNK
     Route: 058
  7. ALLOPURINOL. [Concomitant]
     Active Substance: ALLOPURINOL
     Indication: HYPERURICAEMIA
     Dosage: 100 MG, UNK (FROM MORE THAN 25 YEARS AGO)
     Route: 048
  8. INSULIN [Concomitant]
     Active Substance: INSULIN NOS
     Indication: PRODUCT USED FOR UNKNOWN INDICATION
     Dosage: UNK
     Route: 065
     Dates: start: 2009

REACTIONS (22)
  - Reactive gastropathy [Unknown]
  - Gastric polyps [Unknown]
  - Streptococcal infection [Recovered/Resolved with Sequelae]
  - Nausea [Unknown]
  - Vitreous prolapse [Unknown]
  - Eye pain [Recovering/Resolving]
  - Erosive oesophagitis [Unknown]
  - Alcohol abuse [Unknown]
  - Iritis [Unknown]
  - White blood cell count decreased [Recovered/Resolved]
  - Platelet count decreased [Recovered/Resolved]
  - Endophthalmitis [Recovered/Resolved with Sequelae]
  - Pancytopenia [Unknown]
  - Intraocular pressure increased [Unknown]
  - Liver disorder [Unknown]
  - Hiatus hernia [Unknown]
  - Barrett^s oesophagus [Unknown]
  - Blood albumin decreased [Unknown]
  - Haemoglobin decreased [Unknown]
  - Haematemesis [Unknown]
  - Fistula [Unknown]
  - Protein total decreased [Unknown]

NARRATIVE: CASE EVENT DATE: 201811
